FAERS Safety Report 16906782 (Version 2)
Quarter: 2019Q4

REPORT INFORMATION
  Report Type: Spontaneous
  Country: US (occurrence: US)
  Receive Date: 20191011
  Receipt Date: 20191016
  Transmission Date: 20200122
  Serious: No
  Sender: FDA-Public Use
  Company Number: US-ELI_LILLY_AND_COMPANY-US201910004758

PATIENT
  Sex: Female
  Weight: 64.85 kg

DRUGS (4)
  1. TYVASO [Concomitant]
     Active Substance: TREPROSTINIL
     Indication: PRODUCT USED FOR UNKNOWN INDICATION
     Dosage: UNK UNK, QID (3-9 BREATHS INHALED)
     Route: 055
     Dates: start: 20180622
  2. TADALAFIL. [Suspect]
     Active Substance: TADALAFIL
     Dosage: 1 DOSAGE FORM, DAILY
     Route: 065
  3. ELIQUIS [Concomitant]
     Active Substance: APIXABAN
     Indication: PRODUCT USED FOR UNKNOWN INDICATION
  4. TADALAFIL. [Suspect]
     Active Substance: TADALAFIL
     Indication: PRODUCT USED FOR UNKNOWN INDICATION
     Dosage: UNK UNK, UNKNOWN
     Route: 065
     Dates: start: 20191001

REACTIONS (3)
  - Myalgia [Unknown]
  - Muscle spasms [Unknown]
  - Pain in extremity [Unknown]

NARRATIVE: CASE EVENT DATE: 20191001
